FAERS Safety Report 7742211-3 (Version None)
Quarter: 2011Q3

REPORT INFORMATION
  Report Type: 
  Country: None (occurrence: None)
  Receive Date: 20110912
  Receipt Date: 20110901
  Transmission Date: 20111222
  Serious: Yes (Hospitalization)
  Sender: FDA-Public Use
  Company Number: IT-UCBSA-039715

PATIENT
  Sex: Female

DRUGS (3)
  1. KEPPRA [Suspect]
     Indication: DYSTHYMIC DISORDER
     Dosage: 60 TABLETS
     Route: 048
     Dates: start: 20110709, end: 20110729
  2. CRESTOR [Concomitant]
     Dosage: TOTAL DAILY DOSE : 10 MG
  3. RISEDRONATE SODIUM [Concomitant]
     Dosage: 2 TABLETS; TOTAL DAILY DOSE : 75 MG

REACTIONS (1)
  - ANGLE CLOSURE GLAUCOMA [None]
